FAERS Safety Report 13142969 (Version 1)
Quarter: 2017Q1

REPORT INFORMATION
  Report Type: Spontaneous
  Country: US (occurrence: US)
  Receive Date: 20170124
  Receipt Date: 20170124
  Transmission Date: 20170428
  Serious: No
  Sender: FDA-Public Use
  Company Number: US-PFIZER INC-2017029307

PATIENT
  Sex: Female

DRUGS (1)
  1. LYRICA [Suspect]
     Active Substance: PREGABALIN
     Dosage: UNK
     Dates: end: 201611

REACTIONS (7)
  - Drug withdrawal syndrome [Unknown]
  - Moaning [Unknown]
  - Feeling abnormal [Unknown]
  - Pain in extremity [Unknown]
  - Bone pain [Unknown]
  - Feeling drunk [Unknown]
  - Screaming [Unknown]

NARRATIVE: CASE EVENT DATE: 201611
